FAERS Safety Report 4584425-X (Version None)
Quarter: 2005Q1

REPORT INFORMATION
  Report Type: 
  Country: None (occurrence: None)
  Receive Date: 20050125
  Receipt Date: 20041110
  Transmission Date: 20050727
  Serious: No
  Sender: FDA-Public Use
  Company Number: USA041183813

PATIENT
  Age: 66 Year
  Sex: Female

DRUGS (5)
  1. FORTEO [Suspect]
     Indication: OSTEOPOROSIS
  2. OXYCONTIN [Concomitant]
  3. HYDROMORPHONE [Concomitant]
  4. FOSAMAX [Concomitant]
  5. OSCAL (CALCIUM CARBONATE) [Concomitant]

REACTIONS (1)
  - NERVOUSNESS [None]
